FAERS Safety Report 6365143-4 (Version None)
Quarter: 2009Q3

REPORT INFORMATION
  Report Type: 
  Country: None (occurrence: None)
  Receive Date: 20090919
  Receipt Date: 20090807
  Transmission Date: 20100115
  Serious: No
  Sender: FDA-Public Use
  Company Number: US-ABBOTT-09P-163-0590100-00

PATIENT
  Sex: Female
  Weight: 99.88 kg

DRUGS (5)
  1. HUMIRA [Suspect]
     Indication: CROHN'S DISEASE
     Dates: start: 20080201
  2. PHENERGAN [Concomitant]
     Indication: DRUG USE FOR UNKNOWN INDICATION
     Dosage: 25-50 MG AS NEEDED
     Route: 048
  3. PROTONIX [Concomitant]
     Indication: DRUG USE FOR UNKNOWN INDICATION
     Route: 048
  4. SOMA [Concomitant]
     Indication: DRUG USE FOR UNKNOWN INDICATION
  5. VITAMIN B12 NOS [Concomitant]
     Indication: DRUG USE FOR UNKNOWN INDICATION
     Route: 050

REACTIONS (14)
  - ASTHENIA [None]
  - BACK PAIN [None]
  - CONTUSION [None]
  - DIZZINESS [None]
  - HYPOAESTHESIA [None]
  - INCORRECT DOSE ADMINISTERED [None]
  - INFLAMMATION [None]
  - INFLUENZA [None]
  - INJECTION SITE IRRITATION [None]
  - INJECTION SITE NODULE [None]
  - MALAISE [None]
  - MUSCULOSKELETAL PAIN [None]
  - NECK PAIN [None]
  - VISUAL IMPAIRMENT [None]
